FAERS Safety Report 16389281 (Version 1)
Quarter: 2019Q2

REPORT INFORMATION
  Report Type: Report from Study
  Country: PE (occurrence: PE)
  Receive Date: 20190604
  Receipt Date: 20190604
  Transmission Date: 20190711
  Serious: Yes (Other)
  Sender: FDA-Public Use
  Company Number: PE-SA-2019SA152262

PATIENT
  Age: 73 Year
  Sex: Female

DRUGS (5)
  1. HYDROCHLOROTHIAZIDE/IRBESARTAN [Suspect]
     Active Substance: HYDROCHLOROTHIAZIDE\IRBESARTAN
     Indication: HYPERTENSION
     Dosage: 300MG /12.5MG, QD
     Route: 048
     Dates: start: 2016, end: 201904
  2. IRBESARTAN. [Concomitant]
     Active Substance: IRBESARTAN
     Indication: HYPERTENSION
     Dosage: UNK UNK, QD OR CODITIONAL BID
     Dates: start: 2016
  3. ALLOPURINOL. [Concomitant]
     Active Substance: ALLOPURINOL
     Indication: BLOOD URIC ACID INCREASED
     Dosage: UNK
     Route: 048
     Dates: start: 2013, end: 201903
  4. COLCHICIN [Concomitant]
     Active Substance: COLCHICINE
     Indication: GOUT
  5. FUROSEMIDE. [Concomitant]
     Active Substance: FUROSEMIDE
     Indication: RENAL FAILURE
     Dosage: 0.5 U (1/2 UNIT), QD
     Route: 048
     Dates: start: 2013

REACTIONS (3)
  - Hepatic steatosis [Unknown]
  - Helicobacter gastritis [Not Recovered/Not Resolved]
  - Faeces discoloured [Recovered/Resolved]

NARRATIVE: CASE EVENT DATE: 201902
